FAERS Safety Report 5091040-0 (Version None)
Quarter: 2006Q3

REPORT INFORMATION
  Report Type: 
  Country: None (occurrence: None)
  Receive Date: 20060829
  Receipt Date: 20050726
  Transmission Date: 20061208
  Serious: No
  Sender: FDA-Public Use
  Company Number: US-GLAXOSMITHKLINE-A0567747A

PATIENT
  Age: 18 Month

DRUGS (1)
  1. ZOVIRAX [Suspect]
     Route: 048

REACTIONS (1)
  - DIARRHOEA [None]
